FAERS Safety Report 16793426 (Version 2)
Quarter: 2020Q4

REPORT INFORMATION
  Report Type: Spontaneous
  Country: US (occurrence: US)
  Receive Date: 20190911
  Receipt Date: 20201021
  Transmission Date: 20210113
  Serious: Yes (Death, Life-Threatening, Hospitalization, Other)
  Sender: FDA-Public Use
  Company Number: US-SUN PHARMACEUTICAL INDUSTRIES LTD-2019R1-219916

PATIENT
  Age: 41 Year
  Sex: Female

DRUGS (3)
  1. IBUPROFEN. [Suspect]
     Active Substance: IBUPROFEN
     Indication: PRODUCT USED FOR UNKNOWN INDICATION
     Dosage: UNK
     Route: 048
  2. FERROUS SULFATE. [Suspect]
     Active Substance: FERROUS SULFATE
     Indication: PRODUCT USED FOR UNKNOWN INDICATION
     Dosage: UNK
     Route: 048
  3. DIPHENHYDRAMINE. [Suspect]
     Active Substance: DIPHENHYDRAMINE
     Indication: PRODUCT USED FOR UNKNOWN INDICATION
     Dosage: UNK
     Route: 048

REACTIONS (13)
  - Blood iron abnormal [Unknown]
  - Hypoxia [Unknown]
  - Overdose [Fatal]
  - Multiple organ dysfunction syndrome [Unknown]
  - Hypotension [Unknown]
  - Oxygen saturation decreased [Unknown]
  - Hepatic failure [Unknown]
  - Tachycardia [Unknown]
  - Lethargy [Unknown]
  - Suicide attempt [Unknown]
  - Disseminated intravascular coagulation [Unknown]
  - Acute respiratory distress syndrome [Unknown]
  - Shock [Unknown]
